FAERS Safety Report 20247403 (Version 3)
Quarter: 2022Q1

REPORT INFORMATION
  Report Type: Report from Study
  Country: AT (occurrence: AT)
  Receive Date: 20211229
  Receipt Date: 20220323
  Transmission Date: 20220423
  Serious: Yes (Other)
  Sender: FDA-Public Use
  Company Number: AT-ROCHE-2926540

PATIENT
  Age: 82 Year
  Sex: Female
  Weight: 77 kg

DRUGS (14)
  1. TRASTUZUMAB [Suspect]
     Active Substance: TRASTUZUMAB
     Indication: HER2 positive breast cancer
     Dosage: 462 MILLIGRAM, Q3W, MOST RECENT DOSE 28-NOV-2017
     Route: 041
     Dates: start: 20170822
  2. PACLITAXEL [Suspect]
     Active Substance: PACLITAXEL
     Indication: HER2 positive breast cancer
     Dosage: 107.73 MILLIGRAM, QW
     Route: 042
     Dates: start: 20170822, end: 20171107
  3. ADO-TRASTUZUMAB EMTANSINE [Suspect]
     Active Substance: ADO-TRASTUZUMAB EMTANSINE
     Indication: HER2 positive breast cancer
     Dosage: 266.14 MICROGRAM, Q3W
     Route: 042
     Dates: start: 20210111
  4. LASIX [Concomitant]
     Active Substance: FUROSEMIDE
     Dosage: UNK (ONGOING = CHECKED)
  5. CRESTOR [Concomitant]
     Active Substance: ROSUVASTATIN CALCIUM
     Dosage: UNK (ONGOING = CHECKED)
  6. EXFORGE HCT [Concomitant]
     Active Substance: AMLODIPINE BESYLATE\HYDROCHLOROTHIAZIDE\VALSARTAN
     Dosage: UNK (ONGOING = CHECKED)
  7. MAGNESIUM ASPARTATE\POTASSIUM ASPARTATE [Concomitant]
     Active Substance: MAGNESIUM ASPARTATE\POTASSIUM ASPARTATE
     Dosage: UNK (ONGOING = CHECKED)
  8. METOPROLOL [Concomitant]
     Active Substance: METOPROLOL
     Dosage: UNK (ONGOING = CHECKED)
  9. DIGITOXIN [Concomitant]
     Active Substance: DIGITOXIN
     Indication: Atrial fibrillation
     Dosage: UNK (ONGOING = CHECKED)
     Dates: start: 20191111
  10. VALSARTAN [Concomitant]
     Active Substance: VALSARTAN
     Dosage: UNK (ONGOING = CHECKED)
  11. METFORMIN [Concomitant]
     Active Substance: METFORMIN HYDROCHLORIDE
     Dosage: UNK (ONGOING = CHECKED)
  12. LOVENOX [Concomitant]
     Active Substance: ENOXAPARIN SODIUM
     Dosage: UNK (ONGOING = CHECKED)
     Dates: start: 20170729
  13. FUROSEMIDE [Concomitant]
     Active Substance: FUROSEMIDE
     Indication: Atrial fibrillation
     Dosage: UNK (ONGOING = CHECKED)
     Dates: start: 20200113
  14. METAMIZOLE [Concomitant]
     Active Substance: METAMIZOLE
     Dosage: UNK (ONGOING = CHECKED)

REACTIONS (2)
  - Hypokalaemia [Not Recovered/Not Resolved]
  - Thrombocytopenia [Not Recovered/Not Resolved]

NARRATIVE: CASE EVENT DATE: 20210517
